FAERS Safety Report 7770932-5 (Version None)
Quarter: 2011Q3

REPORT INFORMATION
  Report Type: 
  Country: None (occurrence: None)
  Receive Date: 20110922
  Receipt Date: 20110113
  Transmission Date: 20111222
  Serious: No
  Sender: FDA-Public Use
  Company Number: US-ASTRAZENECA-2011SE02315

PATIENT
  Age: 62 Year
  Sex: Female
  Weight: 81.6 kg

DRUGS (5)
  1. PROZAC [Concomitant]
  2. KLONOPIN [Concomitant]
  3. SEROQUEL XR [Suspect]
     Indication: BIPOLAR I DISORDER
     Route: 048
     Dates: start: 20090101
  4. SYNTHROID [Concomitant]
  5. SEROQUEL XR [Suspect]
     Route: 048

REACTIONS (5)
  - FEELING ABNORMAL [None]
  - DRUG ADMINISTRATION ERROR [None]
  - HYPERSOMNIA [None]
  - DRUG DOSE OMISSION [None]
  - DISEASE RECURRENCE [None]
